FAERS Safety Report 9252004 (Version 2)
Quarter: 2014Q1

REPORT INFORMATION
  Report Type: Spontaneous
  Country: IT (occurrence: IT)
  Receive Date: 20130424
  Receipt Date: 20140122
  Transmission Date: 20141002
  Serious: Yes (Other)
  Sender: FDA-Public Use
  Company Number: IT-MYLANLABS-2013S1008156

PATIENT
  Age: 11 Year
  Sex: Male
  Weight: 55 kg

DRUGS (2)
  1. RISPERIDONE [Suspect]
     Indication: PSYCHOTIC BEHAVIOUR
     Route: 048
     Dates: start: 20121119
  2. HALOPERIDOL [Interacting]
     Indication: PSYCHOTIC BEHAVIOUR
     Route: 030
     Dates: start: 20121129, end: 20121130

REACTIONS (2)
  - Dyslexia [Recovered/Resolved]
  - Drug interaction [Recovered/Resolved]
